FAERS Safety Report 13746229 (Version 2)
Quarter: 2017Q3

REPORT INFORMATION
  Report Type: Spontaneous
  Country: CH (occurrence: CH)
  Receive Date: 20170712
  Receipt Date: 20170724
  Transmission Date: 20171127
  Serious: Yes (Hospitalization, Other)
  Sender: FDA-Public Use
  Company Number: CH-PFIZER INC-2017295670

PATIENT
  Age: 41 Year
  Sex: Female
  Weight: 49.7 kg

DRUGS (26)
  1. CYCLOPHOSPHAMID [Suspect]
     Active Substance: CYCLOPHOSPHAMIDE
     Dosage: 1 DF = 750MG/M2, CYCLIC ON DAY 1 (12 CYCLES TOTALLY)
     Dates: start: 20160405, end: 20160928
  2. FRAGMIN [Concomitant]
     Active Substance: DALTEPARIN SODIUM
     Dosage: 1 DF (= 15000 IU/0.6ML), 1X/DAY 0-0-1-0
     Route: 058
  3. MOVICOL [Concomitant]
     Active Substance: POLYETHYLENE GLYCOL 3350\POTASSIUM CHLORIDE\SODIUM BICARBONATE\SODIUM CHLORIDE
     Indication: CONSTIPATION
     Dosage: AS NEEDED AT OBSTIPATION, MAX. 2X/DAY
  4. ONDANSETRON TEVA /00955301/ [Concomitant]
     Dosage: 8 MG, 2X/DAY (1-0-1-0)
     Route: 048
     Dates: end: 20160928
  5. PREDNISON GALEPHARM [Suspect]
     Active Substance: PREDNISONE
     Dosage: 50MG 1-0-0-0 60 MG/M2  (DAY 1-14, 12 CYCLES TOTALLY)
     Route: 048
     Dates: end: 20160906
  6. TAVANIC [Concomitant]
     Active Substance: LEVOFLOXACIN
     Indication: PYREXIA
     Dosage: 500 MG, AT FEVER AS NEEDED, INTAKE AFTER CONSULATION
     Route: 048
  7. METHOTREXATE SODIUM. [Suspect]
     Active Substance: METHOTREXATE SODIUM
     Dosage: 15 MG, UNK
     Route: 037
     Dates: start: 20160405, end: 20170520
  8. ASPARAGINASE [Concomitant]
     Active Substance: ASPARAGINASE
     Dosage: 1 DF (=6000 IU/M2), CYCLIC DAY 8,10,12 (12 CYCLES TOTALLY)
     Dates: start: 20160405, end: 20160928
  9. TRITTICO [Concomitant]
     Active Substance: TRAZODONE HYDROCHLORIDE
     Dosage: 150 MG, 1X/DAY 0-0-0-1
     Route: 048
  10. CREON [Concomitant]
     Active Substance: PANCRELIPASE AMYLASE\PANCRELIPASE LIPASE\PANCRELIPASE PROTEASE
     Dosage: 150 MG, 1-2-2-0
     Route: 048
  11. VALTREX [Concomitant]
     Active Substance: VALACYCLOVIR HYDROCHLORIDE
     Dosage: 500 MG, 1X/DAY 1-0-0-0
     Route: 048
  12. CYTOSAR [Suspect]
     Active Substance: CYTARABINE
     Dosage: 40 MG, UNK
     Route: 037
  13. VINCRISTIN [Concomitant]
     Active Substance: VINCRISTINE
     Dosage: CYCLIC, 2 MG DAY 1 AND 8 (12 CYCLES TOTALLY)
     Dates: start: 20160405, end: 20160928
  14. DAFALGAN [Concomitant]
     Active Substance: ACETAMINOPHEN
     Indication: PAIN
     Dosage: 1 G, AT PAIN, IN RESERVE, MAX 4/DAY
  15. NOVALGIN [Concomitant]
     Active Substance: METAMIZOLE SODIUM
     Indication: PAIN
     Dosage: 500 MG, AT PAIN, IN RESERVE, MAX 4X2 PER DAY
  16. PASPERTIN /00041902/ [Concomitant]
     Active Substance: METOCLOPRAMIDE HYDROCHLORIDE
     Indication: NAUSEA
     Dosage: 10 MG, AT NAUSEA, IN RESERVE, MAX 4 TABLETS/DAY
  17. DAUNORUBICIN [Concomitant]
     Active Substance: DAUNORUBICIN
     Dosage: 50 MG/M2, CYCLIC DAY 1-3, 12 CYCLES TOTALLY
  18. METHOTREXATE SODIUM. [Suspect]
     Active Substance: METHOTREXATE SODIUM
     Dosage: 15 MG, MONTHLY
     Route: 037
     Dates: start: 20160524, end: 20170520
  19. PURINETHOL [Suspect]
     Active Substance: MERCAPTOPURINE
     Dosage: 60 MG/M2, TWICE PER MONTH
     Dates: start: 20160524, end: 20170520
  20. PREDNISON GALEPHARM [Suspect]
     Active Substance: PREDNISONE
     Dosage: 20 MG, 2X/DAY  2-0-0-0 (60 MG/M2)  (DAY 1-14, 12 CYCLES TOTALLY)
     Route: 048
     Dates: end: 20160906
  21. PREDNISON GALEPHARM [Suspect]
     Active Substance: PREDNISONE
     Dosage: 60 MG/M2, 14 TIMES PER MONTH
     Route: 048
     Dates: start: 20160405, end: 20160928
  22. DEXAMETHASON /00016001/ [Suspect]
     Active Substance: DEXAMETHASONE
     Dosage: 4 MG, UNK
     Route: 037
  23. BACTRIM [Suspect]
     Active Substance: SULFAMETHOXAZOLE\TRIMETHOPRIM
     Dosage: 1 DF (1 DF = 800 MG SULFAMETHOXAZOLE, 160 MG TRIMETHOPRIM), MON, WED, FRI IN EACH CASE ONE TABLET
  24. ESOMEP /01479302/ [Concomitant]
     Active Substance: ESOMEPRAZOLE MAGNESIUM
     Dosage: 40 MG, 1X/DAY (1-0-0-0)
     Route: 048
  25. VI-DE 3 [Concomitant]
     Active Substance: CHOLECALCIFEROL
     Dosage: 1 DF (100 IU/DROP), 8 DROPS /DAY 8-0-0-0
     Route: 048
  26. MOTILIUM [Concomitant]
     Active Substance: DOMPERIDONE
     Indication: NAUSEA
     Dosage: 10 MG, AT NAUSEA, IN RESERVE, MAX 4 TABLETS/DAY

REACTIONS (3)
  - Neutropenic sepsis [Unknown]
  - Disease recurrence [Recovered/Resolved]
  - Clostridium difficile colitis [Recovered/Resolved]

NARRATIVE: CASE EVENT DATE: 20160827
